FAERS Safety Report 8587476 (Version 2)
Quarter: 2013Q1

REPORT INFORMATION
  Report Type: Spontaneous
  Country: US (occurrence: US)
  Receive Date: 20120531
  Receipt Date: 20130131
  Transmission Date: 20140127
  Serious: Yes (Life-Threatening, Hospitalization, Other)
  Sender: FDA-Public Use
  Company Number: US-BAYER-2012-053299

PATIENT
  Age: 24 Year
  Sex: Female
  Weight: 73.47 kg

DRUGS (3)
  1. YAZ [Suspect]
     Indication: DYSMENORRHOEA
     Dosage: UNK
     Dates: start: 200806, end: 201205
  2. YAZ [Suspect]
     Indication: PREMENSTRUAL SYNDROME
  3. YAZ [Suspect]
     Indication: CONTRACEPTION

REACTIONS (5)
  - Deep vein thrombosis [None]
  - Local swelling [None]
  - Pain in extremity [None]
  - Pulmonary embolism [None]
  - Chest pain [None]
